FAERS Safety Report 21759464 (Version 2)
Quarter: 2023Q2

REPORT INFORMATION
  Report Type: Spontaneous
  Country: US (occurrence: US)
  Receive Date: 20221221
  Receipt Date: 20230605
  Transmission Date: 20230721
  Serious: Yes (Other)
  Sender: FDA-Public Use
  Company Number: US-BEH-2022153352

PATIENT
  Sex: Female

DRUGS (1)
  1. HIZENTRA [Suspect]
     Active Substance: HUMAN IMMUNOGLOBULIN G
     Indication: Pulmonary arterial hypertension
     Dosage: 30 GRAM, QOW
     Route: 058
     Dates: start: 202204

REACTIONS (8)
  - Pulmonary arterial hypertension [Unknown]
  - Decreased appetite [Unknown]
  - Dyspnoea [Unknown]
  - Peripheral swelling [Unknown]
  - Peripheral swelling [Unknown]
  - Joint swelling [Unknown]
  - No adverse event [Unknown]
  - Off label use [Unknown]
